FAERS Safety Report 23570998 (Version 4)
Quarter: 2024Q4

REPORT INFORMATION
  Report Type: Spontaneous
  Country: US (occurrence: US)
  Receive Date: 20240227
  Receipt Date: 20241227
  Transmission Date: 20250114
  Serious: No
  Sender: PFIZER
  Company Number: US-PFIZER INC-202400049671

PATIENT
  Age: 90 Year
  Sex: Female
  Weight: 62.585 kg

DRUGS (35)
  1. DILTIAZEM HYDROCHLORIDE [Suspect]
     Active Substance: DILTIAZEM HYDROCHLORIDE
     Indication: Atrial fibrillation
     Dosage: 120 MG, DAILY, 24 HR TABLET
     Route: 048
     Dates: start: 20180214, end: 20180222
  2. ALL DAY ALLERGY [Concomitant]
     Active Substance: CETIRIZINE HYDROCHLORIDE
     Dosage: 10 MG
     Dates: start: 20160211
  3. ANUSOL HC [Concomitant]
     Active Substance: HYDROCORTISONE
     Dosage: UNK, 2X/DAY,A THIN LAYER TO THE AFFECTED AREA(S) X 7 DAYS
     Route: 061
     Dates: start: 20171108
  4. ATENOLOL [Concomitant]
     Active Substance: ATENOLOL
     Dosage: 1 DF, DAILY
     Route: 048
     Dates: start: 20170901
  5. BENADRYL [Concomitant]
     Active Substance: DIPHENHYDRAMINE HYDROCHLORIDE
     Dosage: 1 DF, EVERY 4 - 6 HOURS, AS NEEDED
     Route: 048
     Dates: start: 20151106
  6. BETAMETHASONE DIPROPIONATE [Concomitant]
     Active Substance: BETAMETHASONE DIPROPIONATE
     Dosage: A THIN LAYER TO THE AFFECTED AREA(S)
     Route: 061
     Dates: start: 20170906
  7. CAFFEINE [Concomitant]
     Active Substance: CAFFEINE
     Dosage: 1 PM, TAKING AS DIRECTED
     Dates: start: 20150204
  8. CHLORPHENIRAMINE MALEATE [Concomitant]
     Active Substance: CHLORPHENIRAMINE MALEATE
     Dosage: 1 DF, EVERY 4 HOURS, AS NEEDED
     Route: 048
     Dates: start: 20151106
  9. CLINDAMYCIN [Concomitant]
     Active Substance: CLINDAMYCIN
     Dosage: 1 DF, 3X/DAY (EVERY 8 HOURS)
     Route: 048
     Dates: start: 20170208
  10. CLOPIDOGREL [Concomitant]
     Active Substance: CLOPIDOGREL BISULFATE
     Dosage: 1 DF, DAILY
     Route: 048
     Dates: start: 20180108
  11. FLONASE ALLERGY RELIEF [Concomitant]
     Active Substance: FLUTICASONE PROPIONATE
     Dosage: 1 - 2 SPRAY BY INTRANASAL EVERY DAY IN EACH NOSTRIL AS NEEDED
     Route: 045
     Dates: start: 20171108
  12. FLUOCINONIDE [Concomitant]
     Active Substance: FLUOCINONIDE
     Dosage: TO THE AFFECTED AREA(S)
     Route: 061
     Dates: start: 20170918
  13. FLUOCINONIDE [Concomitant]
     Active Substance: FLUOCINONIDE
     Dosage: TO THE AFFECTED AREA(S), TOPICAL SOLUTION
     Route: 061
     Dates: start: 20170918
  14. GAS-X [Concomitant]
     Active Substance: DIMETHICONE
     Dosage: UNK, AS NEEDED, TAKING AS DIRECTED
     Dates: start: 20150204
  15. IRON [Concomitant]
     Active Substance: IRON
     Dosage: EXTENDED RELEASE
     Dates: start: 20170208
  16. LISINOPRIL [Concomitant]
     Active Substance: LISINOPRIL
     Dosage: 1 DF, 2X/DAY
     Route: 048
     Dates: start: 20170915
  17. LOPERAMIDE [Concomitant]
     Active Substance: LOPERAMIDE
     Dosage: 1 DF, AS NEEDED
     Dates: start: 20140711
  18. MAGNESIUM [Concomitant]
     Active Substance: MAGNESIUM
     Dosage: UNK, DAILY
     Dates: start: 20150204
  19. OXYCODONE [Concomitant]
     Active Substance: OXYCODONE
     Dosage: 1 DF, AS NEEDED, EVERY 4 - 6 HOURS
     Route: 048
     Dates: start: 20170508
  20. PAIN RELIEVER [Concomitant]
     Active Substance: ACETAMINOPHEN\IBUPROFEN
     Dosage: 2 DF, 4X/DAY, AS NEEDED
     Route: 048
     Dates: start: 20240711
  21. PANTOPRAZOLE SODIUM [Concomitant]
     Active Substance: PANTOPRAZOLE SODIUM
     Dosage: 1 DF, 1X/DAY
     Route: 048
     Dates: start: 20180108
  22. PRAVASTATIN SODIUM [Concomitant]
     Active Substance: PRAVASTATIN SODIUM
     Dosage: 1 DF, DAILY
     Route: 048
     Dates: start: 20171026
  23. PREDNISONE [Concomitant]
     Active Substance: PREDNISONE
     Dosage: 1 DF, DAILY
     Route: 048
     Dates: start: 20170713
  24. PREDNISONE [Concomitant]
     Active Substance: PREDNISONE
     Dosage: TAPER: 60 MG, 1X/DAY, QD X 3 DAYS
     Route: 048
  25. PREDNISONE [Concomitant]
     Active Substance: PREDNISONE
     Dosage: 40 MG, 1X/DAY, QD X3 DAYS
     Route: 048
  26. PREDNISONE [Concomitant]
     Active Substance: PREDNISONE
     Dosage: 20 MG, 1X/DAY, QD X 3 DAYS THEN
     Route: 048
  27. PROAIR HFA [Concomitant]
     Active Substance: ALBUTEROL SULFATE
     Dosage: 2 PUFF BY INHALATION EVERY 4-6 HOURS, AEROSOL INHALER
     Route: 045
     Dates: start: 20170202
  28. ROPINIROLE [Concomitant]
     Active Substance: ROPINIROLE
     Dosage: 2 DF, 3X/DAY
     Route: 048
     Dates: start: 20170626
  29. SYMBICORT [Concomitant]
     Active Substance: BUDESONIDE\FORMOTEROL FUMARATE DIHYDRATE
     Dosage: 2 PUFF BY INHALATION, IN THE MORNING AND EVENING, HFA AEROSOL INHALER
     Route: 045
     Dates: start: 20170202
  30. SYSTANE (HYPROMELLOSE 2910 (4000 MPA.S)) [Concomitant]
     Active Substance: HYPROMELLOSE 2910 (4000 MPA.S)
     Dosage: 0.3 %
     Dates: start: 20151106
  31. TRIAMCINOLONE ACETONIDE [Concomitant]
     Active Substance: TRIAMCINOLONE ACETONIDE
     Dosage: A THIN LAYER TO ITCHY AREA, 0.1%
     Route: 061
     Dates: start: 20170315
  32. TRIAMCINOLONE ACETONIDE [Concomitant]
     Active Substance: TRIAMCINOLONE ACETONIDE
     Dosage: MIX WITH EUCERIN CREAM, A THIN LAYER TO THE AFFECTED AREA(S) AS NEEDED
     Route: 061
     Dates: start: 20170926
  33. TUMS [Concomitant]
     Active Substance: CALCIUM CARBONATE
     Dosage: UNK
     Dates: start: 20160211
  34. VITAMIN C [Concomitant]
     Active Substance: ASCORBIC ACID
     Dosage: EXTENDED RELEASE
     Dates: start: 20170208
  35. DICLOFENAC [Concomitant]
     Active Substance: DICLOFENAC
     Dosage: 2 G, 4X/DAY, TO THE AFFECTED AREA(S)
     Route: 061
     Dates: start: 20150421

REACTIONS (4)
  - Nausea [Recovered/Resolved]
  - Drug hypersensitivity [Recovered/Resolved]
  - Urticaria [Recovered/Resolved]
  - Pruritus [Unknown]

NARRATIVE: CASE EVENT DATE: 20180215
